FAERS Safety Report 9669268 (Version 2)
Quarter: 2014Q1

REPORT INFORMATION
  Report Type: Spontaneous
  Country: GB (occurrence: None)
  Receive Date: 20131101
  Receipt Date: 20140205
  Transmission Date: 20141002
  Serious: Yes (Life-Threatening, Hospitalization, Other)
  Sender: FDA-Public Use
  Company Number: AUR-APL-2013-09050

PATIENT
  Age: 17 Year
  Sex: Female
  Weight: 55 kg

DRUGS (2)
  1. FLUOXETINE (FLUOXETINE) [Suspect]
     Indication: DEPRESSION
     Route: 048
     Dates: start: 20130812, end: 20131002
  2. OXYTETRACYCLINE [Suspect]
     Indication: ACNE

REACTIONS (8)
  - Depersonalisation [None]
  - Abnormal behaviour [None]
  - Intentional overdose [None]
  - Drug effect decreased [None]
  - Drug interaction [None]
  - Adverse drug reaction [None]
  - Shoplifting [None]
  - Pyromania [None]
